FAERS Safety Report 7253529-5 (Version None)
Quarter: 2011Q1

REPORT INFORMATION
  Report Type: 
  Country: None (occurrence: None)
  Receive Date: 20110129
  Receipt Date: 20100215
  Transmission Date: 20110831
  Serious: No
  Sender: FDA-Public Use
  Company Number: US-ABBOTT-10P-163-0627522-00

PATIENT
  Sex: Male
  Weight: 78.088 kg

DRUGS (4)
  1. ASACOL [Concomitant]
     Indication: CROHN'S DISEASE
  2. HUMIRA [Suspect]
     Indication: CROHN'S DISEASE
     Dates: start: 20080101
  3. IMURAN [Concomitant]
     Indication: CROHN'S DISEASE
  4. HUMIRA [Suspect]

REACTIONS (2)
  - PALPITATIONS [None]
  - CROHN'S DISEASE [None]
